FAERS Safety Report 7443398-2 (Version None)
Quarter: 2011Q2

REPORT INFORMATION
  Report Type: 
  Country: None (occurrence: None)
  Receive Date: 20110428
  Receipt Date: 20110419
  Transmission Date: 20111010
  Serious: Yes (Hospitalization, Other)
  Sender: FDA-Public Use
  Company Number: US-ABBOTT-10P-163-0693234-00

PATIENT
  Sex: Male
  Weight: 95.794 kg

DRUGS (31)
  1. OXYCODONE HCL [Concomitant]
     Indication: BREAKTHROUGH PAIN
     Dosage: 1 QD, PRN
     Route: 048
  2. PROPRANOLOL [Concomitant]
     Indication: PRODUCT USED FOR UNKNOWN INDICATION
     Dosage: 2 TABS TWICE A DAY, PRN
     Route: 048
  3. HUMIRA [Suspect]
     Route: 058
     Dates: start: 20100101, end: 20100801
  4. HUMIRA [Suspect]
     Route: 058
     Dates: start: 20100801
  5. LOPID [Concomitant]
     Indication: BLOOD TRIGLYCERIDES INCREASED
     Route: 048
  6. ZYRTEC [Concomitant]
     Indication: SEASONAL ALLERGY
  7. ASACOL [Concomitant]
     Indication: CROHN'S DISEASE
     Dosage: 400 MG, 2 BID
     Route: 048
  8. PREVACID [Concomitant]
     Indication: GASTROOESOPHAGEAL REFLUX DISEASE
     Route: 048
     Dates: start: 19990101
  9. VITAMIN E [Concomitant]
     Dosage: 400 UNITS 4X DAILY, 2010
  10. ACETAMINOPHEN AND HYDROCODONE BITARTRATE [Concomitant]
     Indication: ARTHRALGIA
     Dosage: 7.5/500 MG TABS, 1-2 Q 4-6 HRS PRN
     Route: 048
  11. URSODIOL [Concomitant]
     Indication: PROPHYLAXIS
  12. ZYRTEC [Concomitant]
     Indication: HYPERSENSITIVITY
     Route: 048
     Dates: start: 20040101
  13. PAXIL [Concomitant]
     Indication: PRODUCT USED FOR UNKNOWN INDICATION
     Route: 048
  14. XANAX XR [Concomitant]
     Indication: DEPRESSION
     Route: 048
  15. MULTI-VITAMIN [Concomitant]
     Indication: VITAMIN SUPPLEMENTATION
     Route: 048
  16. FOLIC ACID [Concomitant]
     Indication: PRODUCT USED FOR UNKNOWN INDICATION
     Route: 048
  17. HUMIRA [Suspect]
     Indication: RHEUMATOID ARTHRITIS
     Route: 058
     Dates: start: 20090301, end: 20100801
  18. HUMIRA [Suspect]
     Indication: CROHN'S DISEASE
     Route: 058
     Dates: start: 20100801, end: 20100801
  19. URSODIOL [Concomitant]
     Indication: CROHN'S DISEASE
     Dosage: 300 MG, 2 QD
     Route: 048
  20. TESTOSTERONE CYPIONATE [Concomitant]
     Indication: BLOOD TESTOSTERONE DECREASED
     Dosage: OIL, 1 IN 2 WEEKS
  21. VITAMIN E [Concomitant]
     Indication: PRODUCT USED FOR UNKNOWN INDICATION
     Route: 048
  22. PREVACID [Concomitant]
     Indication: HIATUS HERNIA
  23. BENTYL [Concomitant]
     Indication: IRRITABLE BOWEL SYNDROME
  24. URSODIOL [Concomitant]
     Indication: LIVER DISORDER
  25. PAXIL [Concomitant]
     Dosage: 40MG DAILY
  26. XANAX XR [Concomitant]
     Indication: IRRITABLE BOWEL SYNDROME
  27. TESTOSTERONE CYPIONATE [Concomitant]
     Dosage: 200MG EVERY TWO WEEKS
  28. CHOLECALCIFEROL [Concomitant]
     Indication: PRODUCT USED FOR UNKNOWN INDICATION
     Route: 048
  29. FOLATE [Concomitant]
     Indication: CROHN'S DISEASE
  30. BENTYL [Concomitant]
     Indication: CROHN'S DISEASE
     Route: 048
  31. LOPID [Concomitant]
     Indication: BLOOD CHOLESTEROL INCREASED

REACTIONS (24)
  - RENAL CYST [None]
  - VISUAL ACUITY REDUCED [None]
  - LABORATORY TEST ABNORMAL [None]
  - CROHN'S DISEASE [None]
  - WEIGHT DECREASED [None]
  - INJECTION SITE HAEMORRHAGE [None]
  - VITAMIN D DEFICIENCY [None]
  - DRUG EFFECT DECREASED [None]
  - BURSITIS [None]
  - MALAISE [None]
  - PARAESTHESIA [None]
  - FATIGUE [None]
  - RENAL CYST HAEMORRHAGE [None]
  - INAPPROPRIATE SCHEDULE OF DRUG ADMINISTRATION [None]
  - FREQUENT BOWEL MOVEMENTS [None]
  - ARTHRALGIA [None]
  - RHEUMATOID ARTHRITIS [None]
  - JOINT STIFFNESS [None]
  - INTRAOCULAR MELANOMA [None]
  - BACK PAIN [None]
  - BLINDNESS UNILATERAL [None]
  - HAEMATOCHEZIA [None]
  - MUSCULOSKELETAL PAIN [None]
  - OSTEOPENIA [None]
